FAERS Safety Report 7672853-5 (Version None)
Quarter: 2011Q3

REPORT INFORMATION
  Report Type: 
  Country: None (occurrence: None)
  Receive Date: 20110809
  Receipt Date: 20110805
  Transmission Date: 20111222
  Serious: Yes (Life-Threatening, Hospitalization)
  Sender: FDA-Public Use
  Company Number: UA-PFIZER INC-2011090661

PATIENT
  Age: 38 Year
  Sex: Male
  Weight: 78 kg

DRUGS (2)
  1. PREGABALIN [Suspect]
     Indication: EPILEPSY
     Dosage: UNK, 2X/DAY
     Route: 048
     Dates: start: 20110201, end: 20110427
  2. BLINDED NO SUBJECT DRUG [Suspect]
     Indication: EPILEPSY
     Dosage: UNK, 2X/DAY
     Route: 048
     Dates: start: 20110201, end: 20110427

REACTIONS (1)
  - STATUS EPILEPTICUS [None]
